FAERS Safety Report 5827682-1 (Version None)
Quarter: 2008Q2

REPORT INFORMATION
  Report Type: 
  Country: None (occurrence: None)
  Receive Date: 20080601
  Receipt Date: 20080324
  Transmission Date: 20081010
  Serious: No
  Sender: FDA-Public Use
  Company Number: US200802002172

PATIENT
  Age: 83 Year
  Sex: Female
  Weight: 79.4 kg

DRUGS (10)
  1. BYETTA [Suspect]
     Indication: TYPE 2 DIABETES MELLITUS
     Dosage: 5 UG, 2/D, SUBCUTANEOUS : 5 UG, EACH MORNING, SUBCUTANEOUS : 10 UG, EACH EVENING, SUBCUTANEOUS
     Route: 058
     Dates: start: 20080201, end: 20080201
  2. BYETTA [Suspect]
     Indication: TYPE 2 DIABETES MELLITUS
     Dosage: 5 UG, 2/D, SUBCUTANEOUS : 5 UG, EACH MORNING, SUBCUTANEOUS : 10 UG, EACH EVENING, SUBCUTANEOUS
     Route: 058
     Dates: start: 20080201, end: 20080201
  3. BYETTA [Suspect]
     Indication: TYPE 2 DIABETES MELLITUS
     Dosage: 5 UG, 2/D, SUBCUTANEOUS : 5 UG, EACH MORNING, SUBCUTANEOUS : 10 UG, EACH EVENING, SUBCUTANEOUS
     Route: 058
     Dates: start: 20080207, end: 20080201
  4. BYETTA [Suspect]
     Dosage: 10 UG, 2/D, SUBCUTANEOUS
     Route: 058
     Dates: start: 20080201
  5. BYETTA [Suspect]
     Dosage: 10 UG, 2/D, SUBCUTANEOUS
     Route: 058
     Dates: start: 20080301
  6. AMARYL [Concomitant]
  7. DRUG USED IN DIABETES [Concomitant]
  8. ACTOS /USA/ (PIOGLITAZONE HYDROCHLORIDE) [Concomitant]
  9. METFORMIN HCL [Concomitant]
  10. CALCIUM (CALCIUM) [Concomitant]

REACTIONS (8)
  - BLOOD GLUCOSE INCREASED [None]
  - CONSTIPATION [None]
  - DECREASED APPETITE [None]
  - DRUG EFFECT DECREASED [None]
  - DYSPEPSIA [None]
  - INJECTION SITE BRUISING [None]
  - STOMACH DISCOMFORT [None]
  - WEIGHT DECREASED [None]
